FAERS Safety Report 20496744 (Version 2)
Quarter: 2022Q1

REPORT INFORMATION
  Report Type: Report from Study
  Country: US (occurrence: US)
  Receive Date: 20220221
  Receipt Date: 20220329
  Transmission Date: 20220423
  Serious: Yes (Hospitalization)
  Sender: FDA-Public Use
  Company Number: US-JNJFOC-20220233321

PATIENT
  Age: 3 Year
  Sex: Female

DRUGS (4)
  1. TRACLEER [Suspect]
     Active Substance: BOSENTAN
     Indication: Respiratory disorder
     Dosage: 100 MG/ML; 50 MG/0.5 ML
     Route: 048
     Dates: start: 20220115, end: 20220308
  2. TRACLEER [Suspect]
     Active Substance: BOSENTAN
     Indication: Respiratory syncytial virus infection
  3. SILDENAFIL CITRATE [Concomitant]
     Active Substance: SILDENAFIL CITRATE
  4. BOSENTAN [Concomitant]
     Active Substance: BOSENTAN
     Dosage: 6.25 MG/ML

REACTIONS (5)
  - Bronchitis [Not Recovered/Not Resolved]
  - Hepatic enzyme increased [Recovered/Resolved]
  - Product use in unapproved indication [Unknown]
  - Off label use [Unknown]
  - Product dose omission issue [Unknown]

NARRATIVE: CASE EVENT DATE: 20220201
